FAERS Safety Report 19967820 (Version 1)
Quarter: 2021Q4

REPORT INFORMATION
  Report Type: Spontaneous
  Country: US (occurrence: US)
  Receive Date: 20211019
  Receipt Date: 20211019
  Transmission Date: 20220303
  Serious: Yes (Hospitalization, Other)
  Sender: FDA-Public Use
  Company Number: US-APOTEX-2021AP044220

PATIENT
  Age: 55 Year
  Sex: Male

DRUGS (1)
  1. GLIPIZIDE [Suspect]
     Active Substance: GLIPIZIDE
     Indication: Product used for unknown indication
     Dosage: UNK
     Route: 065

REACTIONS (11)
  - Hypoxia [Recovered/Resolved]
  - Anterograde amnesia [Recovered/Resolved]
  - Accidental overdose [Recovered/Resolved]
  - Disorientation [Recovered/Resolved]
  - Retrograde amnesia [Recovered/Resolved]
  - Blood creatine phosphokinase increased [Recovering/Resolving]
  - Disinhibition [Unknown]
  - Central nervous system lesion [Unknown]
  - Drug screen positive [Unknown]
  - Hypoglycaemia [Recovered/Resolved]
  - Seizure [Recovered/Resolved]
